FAERS Safety Report 5234664-X (Version None)
Quarter: 2007Q1

REPORT INFORMATION
  Report Type: 
  Country: None (occurrence: None)
  Receive Date: 20070209
  Receipt Date: 20070130
  Transmission Date: 20070707
  Serious: Yes (Other)
  Sender: FDA-Public Use
  Company Number: US-PFIZER INC-2004057612

PATIENT
  Age: 43 Year
  Sex: Male
  Weight: 93 kg

DRUGS (5)
  1. GEODON [Suspect]
     Indication: HYPOCHONDRIASIS
     Route: 048
     Dates: start: 20040501, end: 20040801
  2. GEODON [Suspect]
     Indication: PARANOIA
  3. VITAMINS [Concomitant]
  4. DIFLUCAN [Concomitant]
  5. ALL OTHER THERAPEUTIC PRODUCTS [Concomitant]

REACTIONS (38)
  - ABDOMINAL PAIN UPPER [None]
  - BACK DISORDER [None]
  - BURNING SENSATION [None]
  - CHOKING SENSATION [None]
  - CONVULSION [None]
  - COUGH [None]
  - COXSACKIE VIRAL INFECTION [None]
  - DIABETIC COMPLICATION [None]
  - DIZZINESS [None]
  - DRUG EFFECT INCREASED [None]
  - ENERGY INCREASED [None]
  - FOOD CRAVING [None]
  - HEADACHE [None]
  - HYPOTHALAMO-PITUITARY DISORDER [None]
  - HYPOVITAMINOSIS [None]
  - INFLAMMATION [None]
  - INSOMNIA [None]
  - JOINT INJURY [None]
  - KELOID SCAR [None]
  - LIPIDS DECREASED [None]
  - MALAISE [None]
  - MOUTH HAEMORRHAGE [None]
  - MUSCLE DISORDER [None]
  - NERVOUS SYSTEM DISORDER [None]
  - NEUROPATHY PERIPHERAL [None]
  - OSTEOPOROSIS [None]
  - PAIN [None]
  - RASH [None]
  - SENSORY LOSS [None]
  - SEXUAL DYSFUNCTION [None]
  - SNEEZING [None]
  - SWELLING [None]
  - T-LYMPHOCYTE COUNT DECREASED [None]
  - TEMPERATURE INTOLERANCE [None]
  - TREMOR [None]
  - UNEVALUABLE EVENT [None]
  - WEIGHT DECREASED [None]
  - WEIGHT INCREASED [None]
